FAERS Safety Report 24272506 (Version 1)
Quarter: 2024Q3

REPORT INFORMATION
  Report Type: Report from Study
  Country: US (occurrence: US)
  Receive Date: 20240902
  Receipt Date: 20240902
  Transmission Date: 20241016
  Serious: Yes (Hospitalization)
  Sender: ROCHE
  Company Number: US-ROCHE-10000065327

PATIENT
  Age: 79 Year
  Sex: Male

DRUGS (6)
  1. OCREVUS [Suspect]
     Active Substance: OCRELIZUMAB
     Indication: Primary progressive multiple sclerosis
     Dosage: 300 MG ON DAY 1 AND DAY 15 THEN 600 MG EVERY 6 MONTHS
     Route: 042
     Dates: start: 2021
  2. ELIQUIS [Concomitant]
     Active Substance: APIXABAN
     Dosage: 5 MG BY MOUTH 1 TAB DAILY
  3. LEVOTHYROXINE [Concomitant]
     Active Substance: LEVOTHYROXINE\LEVOTHYROXINE SODIUM
     Dosage: 75 MCG 1 TAB DAILY BY MOUTH
  4. COZAAR [Concomitant]
     Active Substance: LOSARTAN POTASSIUM
     Dosage: 50 MG BY MOUTH
  5. LOPRESSOR [Concomitant]
     Active Substance: METOPROLOL TARTRATE
     Dosage: 25 MG TAB BY MOUTH TWICE DAILY
  6. DITROPAN XL [Concomitant]
     Active Substance: OXYBUTYNIN CHLORIDE
     Indication: Hypertonic bladder
     Dosage: 5 MG

REACTIONS (9)
  - Ankle fracture [Recovered/Resolved]
  - Peripheral swelling [Not Recovered/Not Resolved]
  - Muscular weakness [Unknown]
  - Extremity necrosis [Unknown]
  - Localised infection [Recovered/Resolved]
  - Venous occlusion [Unknown]
  - Fall [Unknown]
  - Necrosis [Not Recovered/Not Resolved]
  - Wound [Not Recovered/Not Resolved]

NARRATIVE: CASE EVENT DATE: 20240405
